APPROVED DRUG PRODUCT: ITRACONAZOLE
Active Ingredient: ITRACONAZOLE
Strength: 100MG
Dosage Form/Route: CAPSULE;ORAL
Application: A208591 | Product #001 | TE Code: AB
Applicant: ALKEM LABORATORIES LTD
Approved: Jun 12, 2017 | RLD: No | RS: No | Type: RX